FAERS Safety Report 12386064 (Version 2)
Quarter: 2016Q2

REPORT INFORMATION
  Report Type: Spontaneous
  Country: RU (occurrence: RU)
  Receive Date: 20160519
  Receipt Date: 20160615
  Transmission Date: 20160815
  Serious: Yes (Other)
  Sender: FDA-Public Use
  Company Number: RU-PFIZER INC-2016205217

PATIENT
  Age: 23 Year
  Sex: Female

DRUGS (2)
  1. INLYTA [Suspect]
     Active Substance: AXITINIB
     Indication: ACUTE LYMPHOCYTIC LEUKAEMIA
     Dosage: 10 MG, DAILY
     Route: 048
     Dates: start: 20160408, end: 20160429
  2. DASATINIB [Concomitant]
     Active Substance: DASATINIB

REACTIONS (6)
  - Disease progression [Recovering/Resolving]
  - Cytomegalovirus infection [Recovered/Resolved]
  - Pyrexia [Recovered/Resolved]
  - Product use issue [Unknown]
  - Human herpesvirus 6 infection [Recovered/Resolved]
  - Acute lymphocytic leukaemia [Recovering/Resolving]

NARRATIVE: CASE EVENT DATE: 2016
